FAERS Safety Report 5508937-7 (Version None)
Quarter: 2007Q4

REPORT INFORMATION
  Report Type: 
  Country: None (occurrence: None)
  Receive Date: 20071031
  Receipt Date: 20070808
  Transmission Date: 20080405
  Serious: No
  Sender: FDA-Public Use
  Company Number: 2007PV033270

PATIENT
  Age: 64 Year
  Sex: Male
  Weight: 163.2949 kg

DRUGS (4)
  1. SYMLIN [Suspect]
     Indication: TYPE 2 DIABETES MELLITUS
     Dosage: 90 MCG;TID;SC
     Route: 058
     Dates: start: 20070807
  2. LANTUS [Concomitant]
  3. PIOGLITAZONE [Concomitant]
  4. BYETTA [Concomitant]

REACTIONS (2)
  - ABDOMINAL PAIN [None]
  - DIARRHOEA [None]
